FAERS Safety Report 24637817 (Version 2)
Quarter: 2024Q4

REPORT INFORMATION
  Report Type: Spontaneous
  Country: US (occurrence: US)
  Receive Date: 20241119
  Receipt Date: 20241209
  Transmission Date: 20250115
  Serious: No
  Sender: BAYER HEALTHCARE PHARMACEUTICALS INC.
  Company Number: US-BAYER-2024A164474

PATIENT
  Age: 49 Year
  Sex: Female
  Weight: 106.58 kg

DRUGS (5)
  1. GADAVIST [Suspect]
     Active Substance: GADOBUTROL
     Indication: Magnetic resonance imaging
     Dosage: 10.5 ML, ONCE IN RIGHT HAND
     Route: 042
     Dates: start: 20241118, end: 20241118
  2. LEVOTHYROXINE [Concomitant]
     Active Substance: LEVOTHYROXINE
     Dosage: 112 MG, QD
  3. SYMBICORT [Concomitant]
     Active Substance: BUDESONIDE\FORMOTEROL FUMARATE DIHYDRATE
     Dosage: 160 MG, PRN
  4. MOUNJARO [Concomitant]
     Active Substance: TIRZEPATIDE
     Dosage: 5 MG PER WEEK
  5. ALBUTEROL [Concomitant]
     Active Substance: ALBUTEROL
     Dosage: 80 MG, QS

REACTIONS (2)
  - Urticaria [Recovered/Resolved with Sequelae]
  - Tongue discomfort [Recovered/Resolved with Sequelae]

NARRATIVE: CASE EVENT DATE: 20241118
